FAERS Safety Report 4278973-X (Version None)
Quarter: 2004Q1

REPORT INFORMATION
  Report Type: 
  Country: None (occurrence: None)
  Receive Date: 20040126
  Receipt Date: 20031103
  Transmission Date: 20041129
  Serious: Yes (Hospitalization)
  Sender: FDA-Public Use
  Company Number: WAES 0311NZL00002

PATIENT
  Age: 81 Year
  Sex: Female

DRUGS (5)
  1. FOSAMAX [Suspect]
     Indication: OSTEOPOROSIS
     Route: 048
     Dates: start: 20031029, end: 20031101
  2. BENDROFLUMETHIAZIDE [Concomitant]
     Indication: BLOOD PRESSURE
     Route: 048
  3. DOXEPIN HYDROCHLORIDE [Suspect]
     Indication: INSOMNIA
     Dates: start: 19740101
  4. OMEPRAZOLE [Concomitant]
     Indication: HIATUS HERNIA
     Route: 048
  5. PINDOLOL [Concomitant]
     Indication: BLOOD PRESSURE
     Route: 048

REACTIONS (4)
  - ARTHRALGIA [None]
  - BLOOD SODIUM DECREASED [None]
  - SPINAL FRACTURE [None]
  - VOMITING [None]
